FAERS Safety Report 18250947 (Version 1)
Quarter: 2020Q3

REPORT INFORMATION
  Report Type: Spontaneous
  Country: DE (occurrence: DE)
  Receive Date: 20200909
  Receipt Date: 20200909
  Transmission Date: 20201103
  Serious: Yes (Hospitalization)
  Sender: FDA-Public Use
  Company Number: DE-BEH-2020122155

PATIENT
  Age: 41 Month
  Sex: Male
  Weight: 16 kg

DRUGS (2)
  1. RHOPHYLAC [Suspect]
     Active Substance: HUMAN RHO(D) IMMUNE GLOBULIN
     Indication: PRODUCT USED FOR UNKNOWN INDICATION
     Dosage: UNK
     Route: 065
     Dates: start: 20200225, end: 20200225
  2. RHOPHYLAC [Suspect]
     Active Substance: HUMAN RHO(D) IMMUNE GLOBULIN
     Indication: PRODUCT USED FOR UNKNOWN INDICATION
     Dosage: UNK
     Route: 065
     Dates: start: 20200225, end: 20200225

REACTIONS (3)
  - Febrile convulsion [Recovering/Resolving]
  - Febrile convulsion [Recovering/Resolving]
  - Exposure via breast milk [Recovering/Resolving]

NARRATIVE: CASE EVENT DATE: 202003
